FAERS Safety Report 6095361-4 (Version None)
Quarter: 2009Q1

REPORT INFORMATION
  Report Type: 
  Country: None (occurrence: None)
  Receive Date: 20090227
  Receipt Date: 20080306
  Transmission Date: 20090719
  Serious: No
  Sender: FDA-Public Use
  Company Number: A0715546A

PATIENT
  Age: 17 Year
  Sex: Male
  Weight: 79.5 kg

DRUGS (4)
  1. LAMICTAL [Suspect]
     Indication: BIPOLAR DISORDER
     Dosage: 300MG PER DAY
     Route: 048
     Dates: start: 20040101
  2. PROVIGIL [Suspect]
     Indication: BIPOLAR DISORDER
     Dosage: 100MG IN THE MORNING
     Route: 048
     Dates: start: 20040101
  3. LITHIUM [Suspect]
     Indication: BIPOLAR DISORDER
     Dosage: 900MG PER DAY
     Route: 048
     Dates: start: 20040101
  4. SEROQUEL [Suspect]
     Indication: BIPOLAR DISORDER
     Dosage: 100MG AT NIGHT
     Route: 048
     Dates: start: 20040101

REACTIONS (2)
  - DENTAL CARIES [None]
  - DRUG INTERACTION [None]
